FAERS Safety Report 7115088-7 (Version None)
Quarter: 2010Q4

REPORT INFORMATION
  Report Type: 
  Country: None (occurrence: None)
  Receive Date: 20101115
  Receipt Date: 20101115
  Transmission Date: 20110411
  Serious: Yes (Hospitalization, Other)
  Sender: FDA-Public Use
  Company Number: None

PATIENT
  Age: 36 Year
  Sex: Female
  Weight: 63.9572 kg

DRUGS (2)
  1. EFFEXOR [Suspect]
     Indication: PANIC ATTACK
     Dosage: 75MG QD PO
     Route: 048
     Dates: start: 20040910, end: 20101115
  2. EFFEXOR [Suspect]
     Indication: SOCIAL PHOBIA
     Dosage: 75MG QD PO
     Route: 048
     Dates: start: 20040910, end: 20101115

REACTIONS (1)
  - DRUG WITHDRAWAL SYNDROME [None]
